FAERS Safety Report 5967481-3 (Version None)
Quarter: 2008Q4

REPORT INFORMATION
  Report Type: 
  Country: None (occurrence: None)
  Receive Date: 20081125
  Receipt Date: 20081120
  Transmission Date: 20090506
  Serious: Yes (Other)
  Sender: FDA-Public Use
  Company Number: JP-PFIZER INC-2008098567

PATIENT
  Age: 84 Year
  Sex: Male

DRUGS (1)
  1. CARDENALIN [Suspect]
     Dosage: DAILY DOSE:2MG
     Route: 048

REACTIONS (2)
  - CEREBRAL INFARCTION [None]
  - DIZZINESS [None]
